FAERS Safety Report 8693581 (Version 5)
Quarter: 2013Q1

REPORT INFORMATION
  Report Type: Spontaneous
  Country: US (occurrence: US)
  Receive Date: 20120731
  Receipt Date: 20130219
  Transmission Date: 20140127
  Serious: Yes (Death, Other)
  Sender: FDA-Public Use
  Company Number: US-BIOGENIDEC-2012BI026533

PATIENT
  Age: 73 Year
  Sex: Male

DRUGS (8)
  1. TYSABRI [Suspect]
     Indication: MULTIPLE SCLEROSIS
     Route: 042
     Dates: start: 20080213, end: 20120703
  2. FOSAMAX [Concomitant]
     Route: 048
  3. ASPRIN [Concomitant]
     Route: 048
  4. LIORESAL [Concomitant]
     Route: 048
  5. LUMIGAN [Concomitant]
     Route: 047
  6. PROZAC [Concomitant]
     Route: 048
  7. VITAMIN D [Concomitant]
     Route: 048
  8. SYNTHROID [Concomitant]
     Indication: HYPOTHYROIDISM
     Route: 048

REACTIONS (2)
  - Death [Fatal]
  - Progressive multifocal leukoencephalopathy [Not Recovered/Not Resolved]
